FAERS Safety Report 14524081 (Version 6)
Quarter: 2020Q3

REPORT INFORMATION
  Report Type: Report from Study
  Country: CH (occurrence: CH)
  Receive Date: 20180213
  Receipt Date: 20200825
  Transmission Date: 20201102
  Serious: Yes (Hospitalization)
  Sender: FDA-Public Use
  Company Number: CH-ROCHE-2068044

PATIENT
  Age: 60 Year
  Sex: Female
  Weight: 65 kg

DRUGS (4)
  1. OCRELIZUMAB. [Suspect]
     Active Substance: OCRELIZUMAB
     Dosage: RECEIVED TWO IV INFUSIONS OF OCRELIZUMAB SEPARATED BY 14 DAYS IN CYCLE 5
     Route: 042
     Dates: start: 20130425
  2. ULTIBRO [Concomitant]
     Active Substance: GLYCOPYRRONIUM\INDACATEROL
     Dates: start: 20150714
  3. OCRELIZUMAB. [Suspect]
     Active Substance: OCRELIZUMAB
     Indication: RELAPSING-REMITTING MULTIPLE SCLEROSIS
     Dosage: RECEIVED TWO IV INFUSIONS OF OCRELIZUMAB SEPARATED BY 14 DAYS IN CYCLE 5. MOST RECENT DOSE RECEIVED
     Route: 042
     Dates: start: 20130404
  4. PLACEBO [Suspect]
     Active Substance: UNSPECIFIED INGREDIENT
     Indication: RELAPSING-REMITTING MULTIPLE SCLEROSIS
     Dosage: SUBSEQUENTLY RECEIVED ON 08/APR/2009 (ON DAY 15), 08/SEP/2009 (WEEK 24), 24/SEP/2009 (WEEK 26), 04/M
     Route: 042
     Dates: start: 20090326

REACTIONS (3)
  - Sepsis [Recovered/Resolved with Sequelae]
  - Infective exacerbation of chronic obstructive airways disease [Recovered/Resolved with Sequelae]
  - Infective exacerbation of chronic obstructive airways disease [Recovered/Resolved]

NARRATIVE: CASE EVENT DATE: 20170623
